FAERS Safety Report 12290447 (Version 1)
Quarter: 2016Q2

REPORT INFORMATION
  Report Type: Spontaneous
  Country: US (occurrence: US)
  Receive Date: 20160421
  Receipt Date: 20160421
  Transmission Date: 20160815
  Serious: No
  Sender: FDA-Public Use
  Company Number: US-MDT-ADR-2016-00724

PATIENT
  Sex: Male

DRUGS (2)
  1. BACLOFEN. [Suspect]
     Active Substance: BACLOFEN
     Dosage: 70 MCG/DAY
     Route: 037
     Dates: end: 20160419
  2. BACLOFEN. [Suspect]
     Active Substance: BACLOFEN
     Dosage: 100 MCG/ML
     Route: 037
     Dates: start: 20160419

REACTIONS (2)
  - Hypertonia [Unknown]
  - Muscle spasticity [Unknown]
